FAERS Safety Report 16480595 (Version 1)
Quarter: 2019Q2

REPORT INFORMATION
  Report Type: Spontaneous
  Country: US (occurrence: US)
  Receive Date: 20190626
  Receipt Date: 20190626
  Transmission Date: 20190711
  Serious: No
  Sender: FDA-Public Use
  Company Number: US-PFIZER INC-2019252365

PATIENT
  Sex: Female

DRUGS (2)
  1. ADVIL [Suspect]
     Active Substance: IBUPROFEN
     Dosage: UNK
  2. IMVEXXY [Suspect]
     Active Substance: ESTRADIOL
     Dosage: UNK
     Route: 067

REACTIONS (1)
  - Blood creatinine increased [Unknown]
